FAERS Safety Report 21463867 (Version 2)
Quarter: 2022Q4

REPORT INFORMATION
  Report Type: Report from Study
  Country: TR (occurrence: None)
  Receive Date: 20221017
  Receipt Date: 20221021
  Transmission Date: 20230112
  Serious: Yes (Other)
  Sender: FDA-Public Use
  Company Number: TR-ROCHE-3198702

PATIENT
  Age: 51 Year
  Sex: Female
  Weight: 72.5 kg

DRUGS (7)
  1. PLACEBO [Suspect]
     Active Substance: UNSPECIFIED INGREDIENT
     Indication: HER2 positive breast cancer
     Dosage: ON 29/SEP/2022, SHE MOST RECENT DOSE OF STUDY DRUG PRIOR TO AE
     Route: 041
     Dates: start: 20220929
  2. ADO-TRASTUZUMAB EMTANSINE [Suspect]
     Active Substance: ADO-TRASTUZUMAB EMTANSINE
     Indication: HER2 positive breast cancer
     Dosage: ON 29/SEP/2022, SHE MOST RECENT DOSE OF STUDY DRUG PRIOR TO AE AND DOSE WAS 1200 MG AND DOSE WAS 266
     Route: 042
     Dates: start: 20220929
  3. LEVOTHYROXINE SODIUM [Concomitant]
     Active Substance: LEVOTHYROXINE SODIUM
     Indication: Hypothyroidism
     Route: 048
     Dates: start: 2014
  4. OMNIPOL (TURKEY) [Concomitant]
     Dates: start: 20221011, end: 20221011
  5. GLUCOFEN [Concomitant]
     Indication: Diabetes mellitus
     Dates: start: 201412
  6. RANEKS [Concomitant]
     Indication: Prophylaxis
     Dates: start: 20221013
  7. CARDURA [Concomitant]
     Active Substance: DOXAZOSIN MESYLATE
     Indication: Hypertension
     Dates: start: 20221013

REACTIONS (1)
  - Electrocardiogram T wave inversion [Recovered/Resolved]

NARRATIVE: CASE EVENT DATE: 20221011
